FAERS Safety Report 15958582 (Version 1)
Quarter: 2019Q1

REPORT INFORMATION
  Report Type: Spontaneous
  Country: US (occurrence: US)
  Receive Date: 20190213
  Receipt Date: 20190213
  Transmission Date: 20190417
  Serious: No
  Sender: FDA-Public Use
  Company Number: US-PURDUE-USA-2018-0145150

PATIENT
  Sex: Female

DRUGS (2)
  1. BUTRANS [Suspect]
     Active Substance: BUPRENORPHINE
     Indication: PAIN
     Dosage: 15 MCG/HR, WEEKLY
     Route: 062
  2. BUTRANS [Suspect]
     Active Substance: BUPRENORPHINE
     Dosage: 20 MCG/HR, WEEKLY
     Route: 062
     Dates: start: 2017

REACTIONS (11)
  - Pain [Unknown]
  - Drug effect decreased [Not Recovered/Not Resolved]
  - Withdrawal syndrome [Unknown]
  - Product size issue [Not Recovered/Not Resolved]
  - Irritability [Unknown]
  - Body temperature increased [Unknown]
  - Hyperhidrosis [Not Recovered/Not Resolved]
  - Application site pain [Not Recovered/Not Resolved]
  - Hot flush [Not Recovered/Not Resolved]
  - Palpitations [Not Recovered/Not Resolved]
  - Anxiety [Unknown]
